FAERS Safety Report 14325162 (Version 2)
Quarter: 2018Q1

REPORT INFORMATION
  Report Type: Spontaneous
  Country: SE (occurrence: SE)
  Receive Date: 20171226
  Receipt Date: 20180201
  Transmission Date: 20180509
  Serious: Yes (Other)
  Sender: FDA-Public Use
  Company Number: SE-ASTELLAS-2017US055805

PATIENT
  Age: 46 Year
  Sex: Female

DRUGS (1)
  1. REGADENOSON [Suspect]
     Active Substance: REGADENOSON
     Indication: ISCHAEMIA
     Dosage: 5 ML, SINGLE, SLOWLY FOR 60 SECONDS
     Route: 042
     Dates: start: 20170306, end: 20170306

REACTIONS (4)
  - Arrhythmia [Unknown]
  - Incorrect drug administration duration [Unknown]
  - Myocardial ischaemia [Recovered/Resolved]
  - Pulmonary oedema [Unknown]

NARRATIVE: CASE EVENT DATE: 20170306
